FAERS Safety Report 23858477 (Version 1)
Quarter: 2024Q2

REPORT INFORMATION
  Report Type: Spontaneous
  Country: US (occurrence: None)
  Receive Date: 20240515
  Receipt Date: 20240515
  Transmission Date: 20240716
  Serious: Yes (Death)
  Sender: FDA-Public Use
  Company Number: US-ROCHE-3563461

PATIENT
  Sex: Male

DRUGS (2)
  1. TNKASE [Suspect]
     Active Substance: TENECTEPLASE
     Indication: Ischaemic stroke
     Route: 042
     Dates: start: 202403
  2. TNKASE [Suspect]
     Active Substance: TENECTEPLASE

REACTIONS (2)
  - Haemorrhage intracranial [Fatal]
  - Off label use [Unknown]
